FAERS Safety Report 5444054-2 (Version None)
Quarter: 2007Q3

REPORT INFORMATION
  Report Type: 
  Country: None (occurrence: None)
  Receive Date: 20070831
  Receipt Date: 20070827
  Transmission Date: 20080115
  Serious: Yes (Other)
  Sender: FDA-Public Use
  Company Number: 2007SP016237

PATIENT
  Age: 46 Year
  Sex: Female
  Weight: 54.4316 kg

DRUGS (3)
  1. PEG-INTRON [Suspect]
     Indication: HEPATITIS C
     Dosage: 80 MCG; QW; SC
     Route: 058
     Dates: start: 20070714, end: 20070803
  2. RIBAVIRIN [Suspect]
     Indication: HEPATITIS C
     Dosage: ; PO
     Route: 048
     Dates: start: 20070714
  3. NEXIUM [Concomitant]

REACTIONS (9)
  - ANXIETY [None]
  - CLAUSTROPHOBIA [None]
  - DEPRESSION [None]
  - DRUG INEFFECTIVE [None]
  - FEELING DRUNK [None]
  - GAIT DISTURBANCE [None]
  - HYPERTENSION [None]
  - MIGRAINE [None]
  - MYALGIA [None]
